FAERS Safety Report 5703025-9 (Version None)
Quarter: 2008Q2

REPORT INFORMATION
  Report Type: 
  Country: None (occurrence: None)
  Receive Date: 20080411
  Receipt Date: 20080402
  Transmission Date: 20081010
  Serious: Yes (Hospitalization)
  Sender: FDA-Public Use
  Company Number: DE-ROCHE-556957

PATIENT
  Age: 56 Year
  Sex: Female

DRUGS (8)
  1. XELODA [Suspect]
     Route: 065
     Dates: start: 20080125
  2. BONDRONAT [Concomitant]
     Dosage: FORM: INFUSION
     Route: 042
  3. FASLODEX [Concomitant]
  4. PANTOZOL [Concomitant]
     Indication: HEADACHE
     Dosage: DOSE TAKEN IN MORNING
  5. IBUPROFEN [Concomitant]
  6. NOVALGIN [Concomitant]
  7. ASCORBIC ACID [Concomitant]
  8. 1 CONCOMITANT DRUG [Concomitant]
     Dosage: DRUG NAME REPORTED AS EQUIZYM MCA

REACTIONS (1)
  - PANCREATITIS ACUTE [None]
